FAERS Safety Report 13611500 (Version 2)
Quarter: 2017Q2

REPORT INFORMATION
  Report Type: Spontaneous
  Country: US (occurrence: US)
  Receive Date: 20170605
  Receipt Date: 20170621
  Transmission Date: 20170830
  Serious: No
  Sender: FDA-Public Use
  Company Number: US-PFIZER INC-2017244344

PATIENT
  Age: 4 Year
  Sex: Female

DRUGS (1)
  1. EUCRISA [Suspect]
     Active Substance: CRISABOROLE
     Dosage: UNK, 2X/DAY (TWICE DAILY IN AREA UNDER THE EYES AND ON THE EYELIDS)
     Route: 061
     Dates: start: 20170419

REACTIONS (3)
  - Application site swelling [Not Recovered/Not Resolved]
  - Erythema [Recovered/Resolved]
  - Application site pain [Not Recovered/Not Resolved]
